FAERS Safety Report 20555368 (Version 2)
Quarter: 2023Q2

REPORT INFORMATION
  Report Type: Spontaneous
  Country: US (occurrence: US)
  Receive Date: 20220304
  Receipt Date: 20230425
  Transmission Date: 20230722
  Serious: Yes (Other)
  Sender: FDA-Public Use
  Company Number: US-PURDUE-USA-2020-0284906

PATIENT
  Sex: Male

DRUGS (4)
  1. OXYCONTIN [Suspect]
     Active Substance: OXYCODONE HYDROCHLORIDE
     Indication: Pain
     Dosage: UNKNOWN
     Route: 048
  2. OXYCODONE HYDROCHLORIDE [Suspect]
     Active Substance: OXYCODONE HYDROCHLORIDE
     Indication: Tooth disorder
     Dosage: 5 MILLIGRAM, QID
     Route: 065
     Dates: start: 20140917
  3. AMOXICILLIN [Concomitant]
     Active Substance: AMOXICILLIN
     Indication: Tooth disorder
     Dosage: 500 MG 1 CAPSULE
     Route: 048
     Dates: start: 20140917
  4. IBUPROFEN [Concomitant]
     Active Substance: IBUPROFEN
     Indication: Tooth disorder
     Dosage: 600 MG 1 TABLET
     Route: 048
     Dates: start: 20140917

REACTIONS (2)
  - Overdose [Unknown]
  - Drug dependence [Unknown]
